FAERS Safety Report 10678695 (Version 1)
Quarter: 2014Q3

REPORT INFORMATION
  Report Type: Spontaneous
  Country: US (occurrence: None)
  Receive Date: 20140917
  Receipt Date: 20140917
  Transmission Date: 20150326
  Serious: No
  Sender: FDA-Public Use
  Company Number: 2014-US-008755

PATIENT
  Age: 16 Year
  Sex: Male

DRUGS (1)
  1. ERWINAZE [Suspect]
     Active Substance: ASPARAGINASE ERWINIA CHRYSANTHEMI
     Indication: T-CELL TYPE ACUTE LEUKAEMIA
     Route: 030
     Dates: end: 20140709

REACTIONS (1)
  - Infection [None]

NARRATIVE: CASE EVENT DATE: 20140711
